FAERS Safety Report 24636468 (Version 1)
Quarter: 2024Q4

REPORT INFORMATION
  Report Type: Spontaneous
  Country: NP (occurrence: NP)
  Receive Date: 20241119
  Receipt Date: 20241119
  Transmission Date: 20250115
  Serious: Yes (Disabling)
  Sender: STRIDES
  Company Number: NP-MLMSERVICE-20241030-PI244003-00270-2

PATIENT
  Age: 79 Year
  Sex: Male

DRUGS (3)
  1. PREDNISOLONE [Suspect]
     Active Substance: PREDNISOLONE
     Indication: COVID-19 pneumonia
     Dosage: 60 MILLIGRAM, QD
     Route: 048
  2. CEFTRIAXONE [Concomitant]
     Active Substance: CEFTRIAXONE
     Indication: COVID-19 pneumonia
     Dosage: 1000 MILLIGRAM, EVERY 12 HRS
     Route: 042
  3. REMDESIVIR [Concomitant]
     Active Substance: REMDESIVIR
     Indication: COVID-19 pneumonia
     Dosage: 100 MILLIGRAM, QD
     Route: 042

REACTIONS (5)
  - Necrotising retinitis [Recovering/Resolving]
  - Retinal detachment [Recovered/Resolved]
  - Retinal ischaemia [Recovering/Resolving]
  - Retinal degeneration [Recovering/Resolving]
  - Endophthalmitis [Recovering/Resolving]
